FAERS Safety Report 5076870-3 (Version None)
Quarter: 2006Q3

REPORT INFORMATION
  Report Type: 
  Country: None (occurrence: None)
  Receive Date: 20060725
  Receipt Date: 20060328
  Transmission Date: 20061208
  Serious: No
  Sender: FDA-Public Use
  Company Number: 200610645BWH

PATIENT
  Sex: Male
  Weight: 90.7194 kg

DRUGS (6)
  1. NEXAVAR [Suspect]
     Indication: RENAL CELL CARCINOMA STAGE UNSPECIFIED
     Dosage: 400 MG, BID, ORAL
     Route: 048
     Dates: start: 20060118
  2. ALLOPURINOL [Concomitant]
  3. COREG [Concomitant]
  4. NORVASC [Concomitant]
  5. LASIX [Concomitant]
  6. COLCHICINE [Concomitant]

REACTIONS (5)
  - BLISTER [None]
  - ERYTHEMA [None]
  - OEDEMA PERIPHERAL [None]
  - PRURITUS [None]
  - YELLOW SKIN [None]
